FAERS Safety Report 22525462 (Version 1)
Quarter: 2023Q2

REPORT INFORMATION
  Report Type: Spontaneous
  Country: None (occurrence: ES)
  Receive Date: 20230606
  Receipt Date: 20230606
  Transmission Date: 20230722
  Serious: Yes (Hospitalization, Other)
  Sender: FDA-Public Use
  Company Number: ES-B.Braun Medical Inc.-2142363

PATIENT
  Age: 33 Year
  Sex: Male

DRUGS (5)
  1. ACETAMINOPHEN [Suspect]
     Active Substance: ACETAMINOPHEN
  2. KETAMINE [Suspect]
     Active Substance: KETAMINE
  3. CODEINE [Suspect]
     Active Substance: CODEINE
  4. DIAZEPAM [Suspect]
     Active Substance: DIAZEPAM
  5. CAFFEINE [Suspect]
     Active Substance: CAFFEINE

REACTIONS (10)
  - Abdominal pain upper [Recovering/Resolving]
  - Mydriasis [Recovering/Resolving]
  - Vomiting [Recovering/Resolving]
  - Hepatitis toxic [Recovering/Resolving]
  - Discomfort [Recovering/Resolving]
  - Dyspepsia [Recovering/Resolving]
  - Palpitations [Recovering/Resolving]
  - Nausea [Recovering/Resolving]
  - Drug abuse [Recovering/Resolving]
  - Hepatic function abnormal [Recovering/Resolving]
